FAERS Safety Report 4302960-6 (Version None)
Quarter: 2004Q1

REPORT INFORMATION
  Report Type: 
  Country: None (occurrence: None)
  Receive Date: 20040126
  Receipt Date: 20030925
  Transmission Date: 20041129
  Serious: No
  Sender: FDA-Public Use
  Company Number: USA030948285

PATIENT
  Sex: Male
  Weight: 62 kg

DRUGS (1)
  1. STRATTERA [Suspect]
     Indication: ATTENTION DEFICIT/HYPERACTIVITY DISORDER
     Dosage: 100 MG/AT BEDTIME
     Dates: start: 20030601

REACTIONS (2)
  - IRRITABILITY [None]
  - PRESCRIBED OVERDOSE [None]
